FAERS Safety Report 17695921 (Version 2)
Quarter: 2020Q4

REPORT INFORMATION
  Report Type: Spontaneous
  Country: US (occurrence: US)
  Receive Date: 20200423
  Receipt Date: 20201025
  Transmission Date: 20210113
  Serious: Yes (Other)
  Sender: FDA-Public Use
  Company Number: US-NAPPMUNDI-USA-2020-0150260

PATIENT
  Age: 50 Year
  Sex: Male
  Weight: 106.58 kg

DRUGS (4)
  1. CODEINE                            /00012602/ [Suspect]
     Active Substance: CODEINE PHOSPHATE
     Indication: PRODUCT USED FOR UNKNOWN INDICATION
     Dosage: UNK
     Route: 065
     Dates: start: 20081208, end: 20160601
  2. OXYCONTIN [Suspect]
     Active Substance: OXYCODONE HYDROCHLORIDE
     Indication: PAIN
     Dosage: 2-4 TABLETS, DAILY
     Route: 048
     Dates: start: 20081208, end: 20160601
  3. HYDROCODONE BITARTRATE (SIMILAR TO NDA 206627) [Suspect]
     Active Substance: HYDROCODONE BITARTRATE
     Indication: PAIN
     Dosage: 4-6 TABLETS, DAILY
     Route: 048
     Dates: start: 20081208, end: 20160601
  4. OXYCODONE HYDROCHLORIDE (SIMILAR TO NDA 22-272) [Suspect]
     Active Substance: OXYCODONE HYDROCHLORIDE
     Indication: PAIN
     Dosage: 4-6 TABLETS, DAILY
     Route: 048
     Dates: start: 20081208, end: 20160601

REACTIONS (6)
  - Drug dependence [Not Recovered/Not Resolved]
  - Toxicity to various agents [Recovered/Resolved]
  - Somnolence [Unknown]
  - Lethargy [Recovered/Resolved]
  - Pain [Unknown]
  - Laziness [Unknown]

NARRATIVE: CASE EVENT DATE: 20081208
